FAERS Safety Report 8830385 (Version 2)
Quarter: 2012Q4

REPORT INFORMATION
  Report Type: 
  Country: US (occurrence: US)
  Receive Date: 20121009
  Receipt Date: 20121022
  Transmission Date: 20130627
  Serious: No
  Sender: FDA-Public Use
  Company Number: US-BAYER-2012-104771

PATIENT
  Sex: Female

DRUGS (2)
  1. ALEVE CAPLET/TABLET,MIDOL EXTENDED RELIEF CAPLET [Suspect]
     Indication: DYSMENORRHOEA
     Dosage: 3 DF, UNK
     Route: 048
  2. MOTRIN [Concomitant]
     Dosage: 800 mg, UNK

REACTIONS (1)
  - Abdominal pain upper [None]
